FAERS Safety Report 11911055 (Version 2)
Quarter: 2016Q1

REPORT INFORMATION
  Report Type: Spontaneous
  Country: US (occurrence: US)
  Receive Date: 20160112
  Receipt Date: 20160328
  Transmission Date: 20160526
  Serious: Yes (Hospitalization, Other)
  Sender: FDA-Public Use
  Company Number: US-PFIZER INC-2016003954

PATIENT
  Age: 77 Year
  Sex: Female
  Weight: 60 kg

DRUGS (1)
  1. IBRANCE [Suspect]
     Active Substance: PALBOCICLIB
     Indication: MALIGNANT NIPPLE NEOPLASM
     Dosage: 125 MG ONCE DAILY, CYCLIC (DAY 1-21 Q 28 DAYS)
     Route: 048
     Dates: start: 20150817, end: 201601

REACTIONS (4)
  - Joint injury [Unknown]
  - Osteoporosis [Unknown]
  - Disease progression [Unknown]
  - Malignant nipple neoplasm [Unknown]
